FAERS Safety Report 4291281-6 (Version None)
Quarter: 2004Q1

REPORT INFORMATION
  Report Type: 
  Country: None (occurrence: None)
  Receive Date: 20040211
  Receipt Date: 20031125
  Transmission Date: 20041129
  Serious: No
  Sender: FDA-Public Use
  Company Number: US-GLAXOSMITHKLINE-A0441520A

PATIENT

DRUGS (1)
  1. PAXIL [Suspect]
     Route: 048

REACTIONS (4)
  - ADVERSE EVENT [None]
  - DISABILITY [None]
  - RELATIONSHIP BREAKDOWN [None]
  - WEIGHT INCREASED [None]
